FAERS Safety Report 5179008-7 (Version None)
Quarter: 2006Q4

REPORT INFORMATION
  Report Type: 
  Country: None (occurrence: None)
  Receive Date: 20061213
  Receipt Date: 20061213
  Transmission Date: 20070319
  Serious: Yes (Hospitalization)
  Sender: FDA-Public Use
  Company Number: None

PATIENT
  Age: 70 Year
  Sex: Male
  Weight: 118.5 kg

DRUGS (1)
  1. GLYBURIDE [Suspect]
     Indication: DIABETES MELLITUS
     Dosage: 10MG BID PO
     Route: 048

REACTIONS (13)
  - CEREBRAL ARTERIOSCLEROSIS [None]
  - CEREBROVASCULAR ACCIDENT [None]
  - CONFUSIONAL STATE [None]
  - DYSPHAGIA [None]
  - HYPERCAPNIA [None]
  - HYPOGLYCAEMIA [None]
  - HYPOGLYCAEMIC ENCEPHALOPATHY [None]
  - INCORRECT DOSE ADMINISTERED [None]
  - ISCHAEMIA [None]
  - MEDICATION ERROR [None]
  - PNEUMONIA [None]
  - RENAL IMPAIRMENT [None]
  - SOMNOLENCE [None]
